FAERS Safety Report 8616708 (Version 3)
Quarter: 2012Q4

REPORT INFORMATION
  Report Type: Report from Study
  Country: JP (occurrence: JP)
  Receive Date: 20120615
  Receipt Date: 20120917
  Transmission Date: 20130627
  Serious: Yes (Death)
  Sender: FDA-Public Use
  Company Number: JP-JNJFOC-20120606490

PATIENT
  Age: 39 Year
  Sex: Male

DRUGS (22)
  1. DOXORUBICIN HYDROCHLORIDE (DOXIL) [Suspect]
     Indication: KAPOSI^S SARCOMA AIDS RELATED
     Dosage: cycle 1
     Route: 042
     Dates: start: 20111017, end: 20111017
  2. EPZICOM [Concomitant]
     Indication: KAPOSI^S SARCOMA AIDS RELATED
     Route: 048
     Dates: start: 20110604, end: 20111023
  3. PREZISTA [Concomitant]
     Indication: KAPOSI^S SARCOMA AIDS RELATED
     Route: 048
     Dates: start: 20110604, end: 20111017
  4. NORVIR [Concomitant]
     Indication: KAPOSI^S SARCOMA AIDS RELATED
     Route: 048
     Dates: start: 20110604, end: 20111017
  5. KALETRA [Concomitant]
     Indication: KAPOSI^S SARCOMA AIDS RELATED
     Route: 048
     Dates: start: 20111018, end: 20111023
  6. EPIVIR [Concomitant]
     Indication: KAPOSI^S SARCOMA AIDS RELATED
     Route: 048
     Dates: start: 20111024, end: 20111028
  7. ISENTRESS [Concomitant]
     Indication: KAPOSI^S SARCOMA AIDS RELATED
     Route: 048
     Dates: start: 20111024, end: 20111028
  8. ZIAGEN [Concomitant]
     Indication: KAPOSI^S SARCOMA AIDS RELATED
     Route: 048
     Dates: start: 20111024, end: 20111028
  9. ISCOTIN [Concomitant]
     Route: 048
     Dates: start: 20110509, end: 20111023
  10. MYCOBUTIN [Concomitant]
     Route: 048
     Dates: start: 20110902, end: 20111023
  11. ZITHROMAC [Concomitant]
     Indication: KAPOSI^S SARCOMA AIDS RELATED
     Route: 048
     Dates: start: 20110526, end: 20111024
  12. CRAVIT [Concomitant]
     Route: 048
     Dates: start: 20110902, end: 20111023
  13. METHYCOBAL [Concomitant]
     Route: 048
     Dates: start: 20110721, end: 20111117
  14. LYRICA [Concomitant]
     Route: 048
     Dates: start: 20110729, end: 20111017
  15. FUNGUARD [Concomitant]
     Route: 042
     Dates: start: 20111016, end: 20111027
  16. TARGOCID [Concomitant]
     Route: 042
     Dates: start: 20110930, end: 20111023
  17. DIPRIVAN [Concomitant]
     Dosage: 300 mg-500 mg
     Route: 042
     Dates: start: 20111017, end: 20111029
  18. NEUTROGIN [Concomitant]
     Dosage: 300 mg-500 mg
     Route: 065
     Dates: start: 20111018, end: 20111018
  19. NEUTROGIN [Concomitant]
     Dosage: 300 mg-500 mg
     Route: 065
     Dates: start: 20111024, end: 20111028
  20. FOSCAVIR [Concomitant]
     Dosage: 300 mg-500 mg
     Route: 042
     Dates: start: 20110929, end: 20111022
  21. DOBUTAMINE HYDROCHLORIDE [Concomitant]
     Dosage: 200-1050 mg
     Route: 042
     Dates: start: 20111024, end: 20111028
  22. LASIX [Concomitant]
     Dosage: 300 mg-500 mg
     Route: 042
     Dates: start: 20111020, end: 20111025

REACTIONS (5)
  - Subarachnoid haemorrhage [Fatal]
  - Renal failure acute [Fatal]
  - Pancytopenia [Fatal]
  - Respiratory disorder [Fatal]
  - Blood pressure decreased [Fatal]
